FAERS Safety Report 8281275-8 (Version None)
Quarter: 2012Q2

REPORT INFORMATION
  Report Type: 
  Country: None (occurrence: None)
  Receive Date: 20120410
  Receipt Date: 20120410
  Transmission Date: 20120825
  Serious: No
  Sender: FDA-Public Use
  Company Number: None

PATIENT

DRUGS (4)
  1. METFORMIN HCL [Suspect]
  2. VICTOZA [Suspect]
  3. ACARBOSE [Suspect]
  4. SAXAGLIPTIN SAXAGLIPTIN [Suspect]

REACTIONS (4)
  - DEHYDRATION [None]
  - HYPOGLYCAEMIA [None]
  - MEDICATION ERROR [None]
  - FALL [None]
